FAERS Safety Report 5962450-1 (Version None)
Quarter: 2008Q4

REPORT INFORMATION
  Report Type: 
  Country: None (occurrence: None)
  Receive Date: 20081121
  Receipt Date: 20081111
  Transmission Date: 20090506
  Serious: Yes (Congenital Anomaly, Other)
  Sender: FDA-Public Use
  Company Number: US-PFIZER INC-2008049872

PATIENT
  Sex: Male
  Weight: 4 kg

DRUGS (4)
  1. ZOLOFT [Suspect]
     Indication: DEPRESSION
     Route: 064
     Dates: start: 20041201
  2. ZOLOFT [Suspect]
     Indication: ANXIETY
  3. EFFEXOR [Concomitant]
     Indication: DEPRESSION
     Route: 064
     Dates: start: 20040101, end: 20041201
  4. EFFEXOR [Concomitant]
     Indication: ANXIETY

REACTIONS (5)
  - ATRIAL SEPTAL DEFECT [None]
  - DRUG EXPOSURE DURING PREGNANCY [None]
  - HYPOPLASTIC LEFT HEART SYNDROME [None]
  - MITRAL VALVE INCOMPETENCE [None]
  - RENAL IMPAIRMENT [None]
